FAERS Safety Report 19599077 (Version 1)
Quarter: 2021Q3

REPORT INFORMATION
  Report Type: Spontaneous
  Country: US (occurrence: US)
  Receive Date: 20210723
  Receipt Date: 20210723
  Transmission Date: 20211014
  Serious: Yes (Hospitalization)
  Sender: FDA-Public Use
  Company Number: None

PATIENT
  Age: 39 Year
  Sex: Male
  Weight: 83.45 kg

DRUGS (1)
  1. CLOMIPHENE [Suspect]
     Active Substance: CLOMIPHENE
     Indication: HYPOGONADISM
     Dosage: ?          OTHER FREQUENCY:EVERY OTHER DAY;?
     Route: 048

REACTIONS (2)
  - Psychotic disorder [None]
  - Mania [None]

NARRATIVE: CASE EVENT DATE: 20210723
